FAERS Safety Report 13097268 (Version 1)
Quarter: 2017Q1

REPORT INFORMATION
  Report Type: Spontaneous
  Country: US (occurrence: US)
  Receive Date: 20170109
  Receipt Date: 20170109
  Transmission Date: 20170428
  Serious: Yes (Life-Threatening, Hospitalization, Disabling)
  Sender: FDA-Public Use
  Company Number: None

PATIENT
  Age: 55 Year
  Sex: Male
  Weight: 68.04 kg

DRUGS (3)
  1. FENTANYL TRANSDERMAL SYSTEM [Suspect]
     Active Substance: FENTANYL
     Indication: CANCER PAIN
     Dosage: QUANITY - 1 EA. STRENGTH (100 MCG + 50 MCG)?FREQUENCY - 1 EVERY 72 HOURS
     Route: 061
     Dates: start: 20161130, end: 20161130
  2. PROTONIX [Concomitant]
     Active Substance: PANTOPRAZOLE SODIUM
  3. PROZAC [Concomitant]
     Active Substance: FLUOXETINE HYDROCHLORIDE

REACTIONS (4)
  - Chest pain [None]
  - Flushing [None]
  - Product quality issue [None]
  - Hypertension [None]

NARRATIVE: CASE EVENT DATE: 20161130
